FAERS Safety Report 21508417 (Version 2)
Quarter: 2022Q4

REPORT INFORMATION
  Report Type: Spontaneous
  Country: US (occurrence: US)
  Receive Date: 20221026
  Receipt Date: 20221114
  Transmission Date: 20230113
  Serious: No
  Sender: FDA-Public Use
  Company Number: US-BRISTOL-MYERS SQUIBB COMPANY-2022-126456

PATIENT
  Age: 70 Year
  Sex: Female
  Weight: 82.55 kg

DRUGS (9)
  1. REVLIMID [Suspect]
     Active Substance: LENALIDOMIDE
     Indication: Plasma cell myeloma
     Dosage: 14D ON 7D OFF
     Route: 048
  2. REVLIMID [Suspect]
     Active Substance: LENALIDOMIDE
     Dosage: DAILY 14 DAYS ON 7 OFF
     Route: 048
  3. DEXAMETHASONE [Suspect]
     Active Substance: DEXAMETHASONE
     Indication: Product used for unknown indication
     Route: 065
  4. Aspirin Oral Tablet 81 MG [Concomitant]
     Indication: Product used for unknown indication
     Route: 065
  5. Acyclovir Oral Tablet 400 MG [Concomitant]
     Indication: Product used for unknown indication
     Route: 048
  6. Citalopram Hydrobromide Oral [Concomitant]
     Indication: Product used for unknown indication
     Route: 048
  7. Atenolol Oral Tablet 50 MG [Concomitant]
     Indication: Product used for unknown indication
     Route: 048
  8. Ondansetron HCl Oral Tablet 4 MG [Concomitant]
     Indication: Product used for unknown indication
     Route: 048
  9. Cephalexin Oral Capsule 500 MG [Concomitant]
     Indication: Product used for unknown indication
     Route: 048

REACTIONS (4)
  - Nausea [Unknown]
  - Constipation [Recovering/Resolving]
  - Off label use [Unknown]
  - Product dose omission issue [Unknown]
